FAERS Safety Report 23025831 (Version 1)
Quarter: 2023Q4

REPORT INFORMATION
  Report Type: Spontaneous
  Country: PE (occurrence: None)
  Receive Date: 20231004
  Receipt Date: 20231004
  Transmission Date: 20240110
  Serious: Yes (Hospitalization)
  Sender: FDA-Public Use
  Company Number: PE-ROCHE-3429959

PATIENT
  Sex: Female
  Weight: 56 kg

DRUGS (1)
  1. AVASTIN [Suspect]
     Active Substance: BEVACIZUMAB
     Indication: Glioblastoma multiforme
     Dosage: DOSE WAS NOT REPORTED
     Route: 042

REACTIONS (5)
  - Neuritis [Unknown]
  - Ill-defined disorder [Unknown]
  - Gastric infection [Unknown]
  - Pain in extremity [Unknown]
  - Hypoaesthesia [Unknown]
